FAERS Safety Report 6718665-8 (Version None)
Quarter: 2010Q2

REPORT INFORMATION
  Report Type: 
  Country: None (occurrence: None)
  Receive Date: 20100504
  Receipt Date: 20100421
  Transmission Date: 20101027
  Serious: Yes (Hospitalization)
  Sender: FDA-Public Use
  Company Number: 7001935

PATIENT
  Age: 30 Year
  Sex: Female

DRUGS (4)
  1. REBIF [Suspect]
     Dosage: 1 DF, 3 IN 1 WK, SUBCUTANEOUS
     Route: 058
     Dates: start: 20090801
  2. BETAFERON [Suspect]
     Dates: start: 20060101, end: 20090701
  3. PLAQUENIL [Concomitant]
  4. PREDNISONE [Concomitant]

REACTIONS (15)
  - ALOPECIA [None]
  - ANTINUCLEAR ANTIBODY POSITIVE [None]
  - ARTHRALGIA [None]
  - BUTTERFLY RASH [None]
  - DNA ANTIBODY POSITIVE [None]
  - DRY MOUTH [None]
  - INJECTION SITE RASH [None]
  - KERATOCONJUNCTIVITIS SICCA [None]
  - MULTIPLE SCLEROSIS RELAPSE [None]
  - OEDEMA PERIPHERAL [None]
  - OROPHARYNGEAL PAIN [None]
  - PAIN IN EXTREMITY [None]
  - PRODUCT FORMULATION ISSUE [None]
  - PROTEINURIA [None]
  - SYSTEMIC LUPUS ERYTHEMATOSUS [None]
